FAERS Safety Report 10812000 (Version 1)
Quarter: 2015Q1

REPORT INFORMATION
  Report Type: Spontaneous
  Country: CA (occurrence: None)
  Receive Date: 20150213
  Receipt Date: 20150213
  Transmission Date: 20150721
  Serious: Yes (Life-Threatening)
  Sender: FDA-Public Use
  Company Number: None

PATIENT
  Age: 77 Year

DRUGS (2)
  1. SERRAPEPTASE 120.000 IU [Concomitant]
  2. CLINDAMYCIN [Suspect]
     Active Substance: CLINDAMYCIN\CLINDAMYCIN PHOSPHATE
     Indication: TOOTH ABSCESS
     Dosage: 1 EVERY 6 HOURS, FOUR TIMES DAILY, TAKEN BY MOUTH
     Route: 048
     Dates: start: 20150210, end: 20150212

REACTIONS (3)
  - Blood pressure increased [None]
  - Feeling abnormal [None]
  - Diarrhoea [None]

NARRATIVE: CASE EVENT DATE: 20150212
